FAERS Safety Report 4657494-6 (Version None)
Quarter: 2005Q2

REPORT INFORMATION
  Report Type: 
  Country: None (occurrence: None)
  Receive Date: 20050510
  Receipt Date: 20050428
  Transmission Date: 20051028
  Serious: Yes (Life-Threatening)
  Sender: FDA-Public Use
  Company Number: JP-JNJFOC-20050501681

PATIENT
  Age: 61 Year
  Sex: Female

DRUGS (2)
  1. DUROTEP [Suspect]
     Route: 062
  2. DUROTEP [Suspect]
     Indication: CANCER PAIN
     Route: 062

REACTIONS (3)
  - RENAL FAILURE ACUTE [None]
  - URETERIC STENOSIS [None]
  - URINARY RETENTION [None]
